FAERS Safety Report 7037666-6 (Version None)
Quarter: 2010Q4

REPORT INFORMATION
  Report Type: 
  Country: None (occurrence: None)
  Receive Date: 20101011
  Receipt Date: 20101007
  Transmission Date: 20110411
  Serious: Yes (Other)
  Sender: FDA-Public Use
  Company Number: PHFR2010GB04224

PATIENT
  Sex: Female
  Weight: 64 kg

DRUGS (2)
  1. LAMISIL [Suspect]
     Dosage: UNK
     Route: 048
     Dates: start: 20100616, end: 20100630
  2. ALENDRONATE SODIUM [Concomitant]
     Indication: OSTEOPOROSIS
     Dosage: 70
     Route: 048
     Dates: start: 20080101

REACTIONS (4)
  - PHOTOSENSITIVITY REACTION [None]
  - RASH ERYTHEMATOUS [None]
  - RASH PAPULAR [None]
  - RASH PRURITIC [None]
